FAERS Safety Report 6145705-X (Version None)
Quarter: 2009Q2

REPORT INFORMATION
  Report Type: 
  Country: None (occurrence: None)
  Receive Date: 20090406
  Receipt Date: 20090406
  Transmission Date: 20091009
  Serious: No
  Sender: FDA-Public Use
  Company Number: None

PATIENT
  Age: 32 Year
  Sex: Female
  Weight: 72.9 kg

DRUGS (1)
  1. MAGNEVIST [Suspect]
     Indication: COMPUTERISED TOMOGRAM
     Dosage: 22ML X 1 IV
     Route: 042
     Dates: start: 20090328

REACTIONS (3)
  - CHEST PAIN [None]
  - NAUSEA [None]
  - RESPIRATORY DISORDER [None]
